FAERS Safety Report 16335911 (Version 4)
Quarter: 2019Q3

REPORT INFORMATION
  Report Type: Spontaneous
  Country: PL (occurrence: PL)
  Receive Date: 20190521
  Receipt Date: 20190919
  Transmission Date: 20191004
  Serious: Yes (Death, Hospitalization, Other)
  Sender: FDA-Public Use
  Company Number: PL-CELLTRION INC.-2019PL020682

PATIENT

DRUGS (18)
  1. AMIKACIN. [Suspect]
     Active Substance: AMIKACIN
     Indication: ADJUVANT THERAPY
     Dosage: UNK, DOSAGE FORM: UNSPECIFIED
     Route: 065
  2. DEXAMETHASONE. [Suspect]
     Active Substance: DEXAMETHASONE
     Indication: DISEASE PROGRESSION
  3. THALIDOMIDE [Suspect]
     Active Substance: THALIDOMIDE
     Indication: WALDENSTROM^S MACROGLOBULINAEMIA
     Dosage: UNK
     Route: 065
     Dates: start: 2015
  4. ACICLOVIR [Suspect]
     Active Substance: ACYCLOVIR
     Indication: ADJUVANT THERAPY
     Dosage: UNK, DOSAGE FORM: UNSPECIFIED
     Route: 065
  5. TIGECYCLINE. [Suspect]
     Active Substance: TIGECYCLINE
     Indication: ADJUVANT THERAPY
     Dosage: UNK, DOSAGE FORM: UNSPECIFIED
     Route: 065
  6. CIPROFLOXACIN. [Suspect]
     Active Substance: CIPROFLOXACIN
     Indication: ADJUVANT THERAPY
     Dosage: UNK, DOSAGE FORM: UNSPECIFIED
     Route: 065
  7. FLUCONAZOLE. [Suspect]
     Active Substance: FLUCONAZOLE
     Indication: ADJUVANT THERAPY
     Dosage: UNK, DOSAGE FORM: UNSPECIFIED
     Route: 065
  8. CEFEPIME [Suspect]
     Active Substance: CEFEPIME HYDROCHLORIDE
     Indication: ADJUVANT THERAPY
     Dosage: UNK, DOSAGE FORM: UNSPECIFIED
     Route: 065
  9. LEUKERAN [Concomitant]
     Active Substance: CHLORAMBUCIL
     Indication: WALDENSTROM^S MACROGLOBULINAEMIA
     Dosage: UNK UNK, UNKNOWN FREQ.
     Route: 065
  10. VANCOMYCIN [Suspect]
     Active Substance: VANCOMYCIN
     Indication: ADJUVANT THERAPY
     Dosage: UNK, DOSAGE FORM: UNSPECIFIED
     Route: 065
  11. RITUXIMAB (UNKNOWN) [Suspect]
     Active Substance: RITUXIMAB
     Indication: DISEASE PROGRESSION
  12. MEROPENEM. [Suspect]
     Active Substance: MEROPENEM
     Indication: ADJUVANT THERAPY
     Dosage: UNK, DOSAGE FORM: UNSPECIFIED
     Route: 065
  13. VALPROIC ACID. [Suspect]
     Active Substance: VALPROIC ACID
     Indication: EPILEPSY
     Route: 065
  14. BENDAMUSTINE HYDROCHLORIDE. [Suspect]
     Active Substance: BENDAMUSTINE HYDROCHLORIDE
     Indication: WALDENSTROM^S MACROGLOBULINAEMIA
     Dosage: UNK UNK, CYCLIC
     Route: 042
     Dates: start: 2015
  15. RITUXIMAB (UNKNOWN) [Suspect]
     Active Substance: RITUXIMAB
     Indication: WALDENSTROM^S MACROGLOBULINAEMIA
     Dosage: UNK
     Route: 065
     Dates: start: 2015
  16. VELCADE [Suspect]
     Active Substance: BORTEZOMIB
     Indication: WALDENSTROM^S MACROGLOBULINAEMIA
     Dosage: UNK UNK, UNKNOWN FREQ.
     Route: 065
  17. VELCADE [Suspect]
     Active Substance: BORTEZOMIB
     Indication: DISEASE PROGRESSION
  18. DEXAMETHASONE. [Suspect]
     Active Substance: DEXAMETHASONE
     Indication: WALDENSTROM^S MACROGLOBULINAEMIA
     Dosage: UNK
     Route: 065
     Dates: start: 2015

REACTIONS (21)
  - Procalcitonin increased [Fatal]
  - Malignant neoplasm progression [Fatal]
  - Abdominal pain upper [Fatal]
  - Weight decreased [Fatal]
  - Thrombocytopenia [Fatal]
  - Off label use [Fatal]
  - Asthenia [Fatal]
  - Blood pressure decreased [Fatal]
  - Enterococcal infection [Fatal]
  - Body temperature increased [Fatal]
  - Palpitations [Fatal]
  - Inflammatory marker increased [Fatal]
  - General physical health deterioration [Fatal]
  - Infection [Fatal]
  - Waldenstrom^s macroglobulinaemia [Fatal]
  - Anaemia [Fatal]
  - Drug ineffective [Fatal]
  - Dysphagia [Fatal]
  - Cachexia [Fatal]
  - Septic shock [Fatal]
  - Product use in unapproved indication [Fatal]

NARRATIVE: CASE EVENT DATE: 20170911
